FAERS Safety Report 7304528-6 (Version None)
Quarter: 2011Q1

REPORT INFORMATION
  Report Type: 
  Country: None (occurrence: None)
  Receive Date: 20110221
  Receipt Date: 20110214
  Transmission Date: 20110831
  Serious: Yes (Hospitalization)
  Sender: FDA-Public Use
  Company Number: US-BRISTOL-MYERS SQUIBB COMPANY-15474711

PATIENT
  Age: 71 Year
  Sex: Male

DRUGS (9)
  1. DIGOXIN [Concomitant]
     Route: 048
  2. IMODIUM [Concomitant]
     Route: 048
  3. SPRYCEL [Suspect]
     Route: 048
     Dates: start: 20101222
  4. CYMBALTA [Concomitant]
     Route: 048
  5. CARDIAZEM [Concomitant]
     Route: 048
  6. GLUCOTROL XL [Concomitant]
     Route: 048
  7. ALBUTEROL [Concomitant]
  8. BYETTA [Concomitant]
  9. MULTI-VITAMIN [Concomitant]
     Dosage: DOSAGE FORM: TABLET
     Route: 048

REACTIONS (2)
  - RESPIRATORY FAILURE [None]
  - MYOCARDIAL INFARCTION [None]
